APPROVED DRUG PRODUCT: HYDRALAZINE HYDROCHLORIDE
Active Ingredient: HYDRALAZINE HYDROCHLORIDE
Strength: 50MG
Dosage Form/Route: TABLET;ORAL
Application: A091679 | Product #003
Applicant: ACTAVIS GROUP PTC EHF
Approved: Mar 4, 2013 | RLD: No | RS: No | Type: DISCN